FAERS Safety Report 5826586-8 (Version None)
Quarter: 2008Q3

REPORT INFORMATION
  Report Type: 
  Country: None (occurrence: None)
  Receive Date: 20080729
  Receipt Date: 20080729
  Transmission Date: 20090109
  Serious: Yes (Other)
  Sender: FDA-Public Use
  Company Number: None

PATIENT
  Sex: Female
  Weight: 81.6475 kg

DRUGS (2)
  1. ICY HOT MEDICATED PATCH XTRA STRENGTH WITH MENTHOL 5% (3 1/8 ^ X 4 5/8 [Suspect]
     Indication: MUSCULOSKELETAL PAIN
     Dosage: 1 PATCH 4 DAY TOPICAL (060)
     Route: 061
     Dates: start: 20080706, end: 20080714
  2. ICY HOT MEDICATED PATCH XTRA STRENGTH WITH MENTHOL 5% (3 1/8 ^ X 4 5/8 [Suspect]
     Indication: MUSCULOSKELETAL PAIN
     Dosage: 1 PATCH 4 DAY TOPICAL (060)
     Route: 061
     Dates: start: 20080716, end: 20080719

REACTIONS (2)
  - INTERNATIONAL NORMALISED RATIO INCREASED [None]
  - PROTHROMBIN TIME PROLONGED [None]
